FAERS Safety Report 14012999 (Version 2)
Quarter: 2017Q4

REPORT INFORMATION
  Report Type: Spontaneous
  Country: NO (occurrence: NO)
  Receive Date: 20170926
  Receipt Date: 20171219
  Transmission Date: 20180321
  Serious: Yes (Hospitalization, Other)
  Sender: FDA-Public Use
  Company Number: NO-GLAXOSMITHKLINE-NO2017GSK148516

PATIENT
  Sex: Female

DRUGS (1)
  1. LAMICTAL [Suspect]
     Active Substance: LAMOTRIGINE
     Indication: BIPOLAR DISORDER
     Dosage: UNK

REACTIONS (4)
  - Live birth [Unknown]
  - Premature separation of placenta [Unknown]
  - Premature labour [Unknown]
  - Exposure during pregnancy [Unknown]
